FAERS Safety Report 23803527 (Version 1)
Quarter: 2024Q2

REPORT INFORMATION
  Report Type: Spontaneous
  Country: CN (occurrence: CN)
  Receive Date: 20240501
  Receipt Date: 20240501
  Transmission Date: 20240715
  Serious: Yes (Hospitalization)
  Sender: FDA-Public Use
  Company Number: CN-BoehringerIngelheim-2024-BI-023955

PATIENT
  Age: 80 Year
  Sex: Female

DRUGS (2)
  1. ALTEPLASE [Suspect]
     Active Substance: ALTEPLASE
     Indication: Thrombolysis
     Route: 042
     Dates: start: 20240402, end: 20240403
  2. ALTEPLASE [Suspect]
     Active Substance: ALTEPLASE
     Route: 042
     Dates: start: 20240402, end: 20240403

REACTIONS (3)
  - Gastrointestinal haemorrhage [Recovering/Resolving]
  - Gingival bleeding [Recovering/Resolving]
  - Stress ulcer [Recovering/Resolving]

NARRATIVE: CASE EVENT DATE: 20240403
